FAERS Safety Report 10780806 (Version 4)
Quarter: 2015Q3

REPORT INFORMATION
  Report Type: Spontaneous
  Country: NO (occurrence: NO)
  Receive Date: 20150210
  Receipt Date: 20150922
  Transmission Date: 20151125
  Serious: Yes (Other)
  Sender: FDA-Public Use
  Company Number: PHHY2015NO013574

PATIENT
  Age: 32 Year
  Sex: Female

DRUGS (17)
  1. BUPRENORPHINE. [Suspect]
     Active Substance: BUPRENORPHINE
     Dosage: 8.8 MG, QD (AT 24 PLUS 5 WEEKS OF GESTATION)
     Route: 060
  2. BUPRENORPHINE. [Suspect]
     Active Substance: BUPRENORPHINE
     Dosage: 10.4 MG, QD (AT 24 WEEKS OF GESTATION)
     Route: 060
  3. BUPRENORPHINE. [Suspect]
     Active Substance: BUPRENORPHINE
     Dosage: 21.6 MG, QD (AT 16 WEEKS OF GESTATION)
     Route: 060
  4. BUPRENORPHINE. [Suspect]
     Active Substance: BUPRENORPHINE
     Dosage: 19 MG, QD(AT 17 WEEKS OF GESTATION)
     Route: 060
  5. BUPRENORPHINE. [Suspect]
     Active Substance: BUPRENORPHINE
     Dosage: 15.4 MG, QD (AT 20 WEEKS OF GESTATION)
     Route: 060
  6. BUPRENORPHINE. [Suspect]
     Active Substance: BUPRENORPHINE
     Dosage: 0.4 MG, QD (AT 3 WEEKS OF GESTATION)
     Route: 060
  7. BUPRENORPHINE. [Suspect]
     Active Substance: BUPRENORPHINE
     Dosage: 4 MG, QD (32 TO END OF PREGNANCY)
     Route: 060
  8. PARACETAMOL [Concomitant]
     Active Substance: ACETAMINOPHEN
     Indication: PAIN
     Route: 065
  9. BUPRENORPHINE. [Suspect]
     Active Substance: BUPRENORPHINE
     Indication: DRUG WITHDRAWAL MAINTENANCE THERAPY
     Dosage: 24 MG, QD (AT 14 WEEKS OF GESTATION)
     Route: 060
  10. BUPRENORPHINE. [Suspect]
     Active Substance: BUPRENORPHINE
     Dosage: 1.2 MG, QD (30 WEEKS OF GESTATION)
     Route: 060
  11. BUPRENORPHINE. [Suspect]
     Active Substance: BUPRENORPHINE
     Dosage: 13.2 MG, QD (AT 22 WEEKS OF GESTATION)
     Route: 060
  12. BUPRENORPHINE. [Suspect]
     Active Substance: BUPRENORPHINE
     Dosage: 7.4 MG, QD (4.8 MG IN THE MORNING AND 2.6 MG IN THE AFTERNOON)
     Route: 065
  13. BUPRENORPHINE. [Suspect]
     Active Substance: BUPRENORPHINE
     Dosage: 7.6 MG, QD (AT 26 WEEKS OF GESTATION)
     Route: 060
  14. BUPRENORPHINE. [Suspect]
     Active Substance: BUPRENORPHINE
     Route: 060
  15. PHENERGAN                          /00488301/ [Concomitant]
     Active Substance: DIBROMPROPAMIDINE ISETHIONATE\PROMETHAZINE HYDROCHLORIDE
     Indication: INSOMNIA
     Route: 065
  16. BUPRENORPHINE. [Suspect]
     Active Substance: BUPRENORPHINE
     Dosage: 2.6 MG, QD  (AROUND 29 WEEKS OF GESTATION)
     Route: 060
  17. BUPRENORPHINE. [Suspect]
     Active Substance: BUPRENORPHINE
     Dosage: 3.4 MG, QD (AT 29 WEEKS OF GESTATION)
     Route: 060

REACTIONS (25)
  - Sneezing [Recovered/Resolved]
  - Sensory disturbance [Recovered/Resolved]
  - Nightmare [Recovered/Resolved]
  - Insomnia [Recovered/Resolved]
  - Drug withdrawal syndrome [Recovered/Resolved]
  - Fatigue [Recovered/Resolved]
  - Pain [Recovered/Resolved]
  - Pelvic pain [Recovered/Resolved]
  - Hyperhidrosis [Recovered/Resolved]
  - Mental disorder [Recovered/Resolved]
  - Uterine contractions abnormal [Recovered/Resolved]
  - Diarrhoea [Recovered/Resolved]
  - Foetal distress syndrome [Recovered/Resolved]
  - Decreased appetite [Recovered/Resolved]
  - Feeling abnormal [Recovered/Resolved]
  - Heart rate increased [Recovered/Resolved]
  - Mydriasis [Recovered/Resolved]
  - Weight decreased [Recovered/Resolved]
  - Stress [Recovered/Resolved]
  - Formication [Recovered/Resolved]
  - Poor quality sleep [Recovered/Resolved]
  - Intentional product misuse [Recovered/Resolved]
  - Prescribed underdose [Recovered/Resolved]
  - Maternal exposure during pregnancy [Recovered/Resolved]
  - Crying [Recovered/Resolved]

NARRATIVE: CASE EVENT DATE: 201111
